FAERS Safety Report 9551600 (Version 1)
Quarter: 2013Q3

REPORT INFORMATION
  Report Type: Spontaneous
  Country: US (occurrence: None)
  Receive Date: 20130724
  Receipt Date: 20130724
  Transmission Date: 20140515
  Serious: Yes (Other)
  Sender: FDA-Public Use
  Company Number: PHEH2012US012464

PATIENT
  Age: 70 Year
  Sex: Male
  Weight: 85.4 kg

DRUGS (5)
  1. GLEEVEC (IMATINIB) TABLET, 100MG [Suspect]
     Indication: CHRONIC MYELOID LEUKAEMIA
     Route: 048
     Dates: start: 20120510, end: 20120612
  2. BACLOFEN [Concomitant]
  3. BACTRIM [Concomitant]
  4. COMPAZINE (PROCHLORPERAZINE EDISYLATE) [Concomitant]
  5. GABAPENTIN [Concomitant]

REACTIONS (2)
  - Platelet count increased [None]
  - Thrombocytopenia [None]
